FAERS Safety Report 9321730 (Version 2)
Quarter: 2013Q4

REPORT INFORMATION
  Report Type: Spontaneous
  Country: US (occurrence: None)
  Receive Date: 20130528
  Receipt Date: 20131113
  Transmission Date: 20140711
  Serious: Yes (Hospitalization)
  Sender: FDA-Public Use
  Company Number: 7211758

PATIENT
  Age: 23 Month
  Sex: Female

DRUGS (1)
  1. LEVOTHYROXINE (LEVOTHYROXINE) [Suspect]
     Indication: PRODUCT USED FOR UNKNOWN INDICATION

REACTIONS (8)
  - Toxicity to various agents [None]
  - Overdose [None]
  - Blood pressure decreased [None]
  - Heart rate increased [None]
  - Sinus tachycardia [None]
  - Pyrexia [None]
  - Hyperthyroidism [None]
  - Disease progression [None]
